FAERS Safety Report 7257511-3 (Version None)
Quarter: 2011Q1

REPORT INFORMATION
  Report Type: 
  Country: None (occurrence: None)
  Receive Date: 20110129
  Receipt Date: 20100518
  Transmission Date: 20110831
  Serious: No
  Sender: FDA-Public Use
  Company Number: US-ABBOTT-10P-163-0646720-00

PATIENT
  Sex: Male
  Weight: 85.352 kg

DRUGS (1)
  1. HUMIRA [Suspect]
     Indication: RHEUMATOID ARTHRITIS
     Dates: start: 20100420

REACTIONS (3)
  - FATIGUE [None]
  - ARTHRALGIA [None]
  - DRUG INEFFECTIVE [None]
